FAERS Safety Report 5719446-4 (Version None)
Quarter: 2008Q2

REPORT INFORMATION
  Report Type: 
  Country: None (occurrence: None)
  Receive Date: 20080428
  Receipt Date: 20080414
  Transmission Date: 20081010
  Serious: Yes (Death, Hospitalization)
  Sender: FDA-Public Use
  Company Number: JP-AMGEN-US270003

PATIENT
  Sex: Female

DRUGS (11)
  1. ENBREL [Suspect]
     Indication: RHEUMATOID ARTHRITIS
     Route: 058
     Dates: start: 20070816
  2. PREDONINE [Suspect]
     Indication: RHEUMATOID ARTHRITIS
     Route: 048
     Dates: start: 19970101
  3. RHEUMATREX [Suspect]
     Indication: RHEUMATOID ARTHRITIS
     Route: 048
     Dates: start: 19970101
  4. FOLIAMIN [Concomitant]
     Route: 048
     Dates: start: 19970101
  5. LOXONIN [Concomitant]
     Route: 048
     Dates: start: 19970101
  6. FOSAMAX [Concomitant]
     Route: 048
  7. BAYMYCARD [Concomitant]
     Route: 048
     Dates: start: 19970101
  8. LANSOPRAZOLE [Concomitant]
     Route: 048
     Dates: start: 19970101
  9. FRANDOL [Concomitant]
     Route: 061
  10. SELTOUCH [Concomitant]
     Dosage: UNKNOWN
     Route: 061
  11. MARZULENE S [Concomitant]
     Route: 048
     Dates: start: 19970101

REACTIONS (20)
  - ABSCESS LIMB [None]
  - ARTHRITIS BACTERIAL [None]
  - ASPARTATE AMINOTRANSFERASE INCREASED [None]
  - BLOOD POTASSIUM INCREASED [None]
  - CARDIO-RESPIRATORY ARREST [None]
  - CONDITION AGGRAVATED [None]
  - FLATULENCE [None]
  - HAEMOGLOBIN DECREASED [None]
  - HAEMORRHAGE SUBCUTANEOUS [None]
  - HYPOTENSION [None]
  - LYMPHOCYTE PERCENTAGE DECREASED [None]
  - MYALGIA [None]
  - NASOPHARYNGITIS [None]
  - NEUTROPHIL PERCENTAGE INCREASED [None]
  - PURULENCE [None]
  - PYREXIA [None]
  - RENAL FAILURE ACUTE [None]
  - RHEUMATOID ARTHRITIS [None]
  - SEPTIC SHOCK [None]
  - STAPHYLOCOCCAL INFECTION [None]
